FAERS Safety Report 8288689-0 (Version None)
Quarter: 2012Q2

REPORT INFORMATION
  Report Type: 
  Country: None (occurrence: None)
  Receive Date: 20120417
  Receipt Date: 20120404
  Transmission Date: 20120825
  Serious: Yes (Congenital Anomaly, Other)
  Sender: FDA-Public Use
  Company Number: US-AMGEN-USACT2012019026

PATIENT

DRUGS (1)
  1. ETANERCEPT [Suspect]
     Dosage: 50 MG, QWK
     Route: 064
     Dates: start: 20091101

REACTIONS (2)
  - CONGENITAL HYPOTHYROIDISM [None]
  - MATERNAL EXPOSURE TIMING UNSPECIFIED [None]
